FAERS Safety Report 11859436 (Version 3)
Quarter: 2016Q3

REPORT INFORMATION
  Report Type: Spontaneous
  Country: US (occurrence: US)
  Receive Date: 20151221
  Receipt Date: 20160906
  Transmission Date: 20161109
  Serious: No
  Sender: FDA-Public Use
  Company Number: US-BRISTOL-MYERS SQUIBB COMPANY-BMS-2015-088361

PATIENT

DRUGS (4)
  1. LITHIUM. [Suspect]
     Active Substance: LITHIUM
     Indication: PARKINSONISM
     Dosage: UNK
     Route: 065
  2. ABILIFY [Suspect]
     Active Substance: ARIPIPRAZOLE
     Indication: PARKINSONISM
     Dosage: UNK
     Route: 065
  3. LITHIUM. [Suspect]
     Active Substance: LITHIUM
     Indication: OSTEOARTHRITIS
  4. ABILIFY [Suspect]
     Active Substance: ARIPIPRAZOLE
     Indication: OSTEOARTHRITIS

REACTIONS (3)
  - Tremor [Unknown]
  - Product use issue [Unknown]
  - Parkinsonism [Unknown]
